FAERS Safety Report 5643153-X (Version None)
Quarter: 2008Q1

REPORT INFORMATION
  Report Type: 
  Country: None (occurrence: None)
  Receive Date: 20080228
  Receipt Date: 20080222
  Transmission Date: 20080703
  Serious: Yes (Disabling)
  Sender: FDA-Public Use
  Company Number: FR-WYE-G01124908

PATIENT
  Age: 10 Year
  Sex: Male

DRUGS (1)
  1. RAPAMUNE [Suspect]
     Indication: LYMPHOMA
     Dosage: PROGRESSIVELY INCREASED UP TO 2 MG DAILY
     Route: 048
     Dates: start: 20071101

REACTIONS (5)
  - CHEILITIS [None]
  - FEEDING DISORDER [None]
  - GINGIVAL BLEEDING [None]
  - GINGIVAL PAIN [None]
  - WEIGHT DECREASED [None]
